FAERS Safety Report 20541306 (Version 1)
Quarter: 2022Q1

REPORT INFORMATION
  Report Type: Spontaneous
  Country: US (occurrence: None)
  Receive Date: 20220302
  Receipt Date: 20220302
  Transmission Date: 20220423
  Serious: Yes (Death)
  Sender: FDA-Public Use
  Company Number: None

PATIENT
  Age: 62 Year
  Sex: Male
  Weight: 97.52 kg

DRUGS (1)
  1. KEYTRUDA [Suspect]
     Active Substance: PEMBROLIZUMAB
     Indication: Bladder cancer
     Dates: start: 20210915, end: 20210915

REACTIONS (6)
  - Fatigue [None]
  - Fall [None]
  - Brain neoplasm [None]
  - General physical health deterioration [None]
  - Gastrointestinal infection [None]
  - Liver injury [None]

NARRATIVE: CASE EVENT DATE: 20211025
